FAERS Safety Report 13936334 (Version 1)
Quarter: 2017Q3

REPORT INFORMATION
  Report Type: Spontaneous
  Country: US (occurrence: None)
  Receive Date: 20170905
  Receipt Date: 20170905
  Transmission Date: 20171127
  Serious: Yes (Hospitalization)
  Sender: FDA-Public Use
  Company Number: None

PATIENT
  Age: 62 Year
  Sex: Male
  Weight: 47.72 kg

DRUGS (2)
  1. NAB-PACLITAXEL [Suspect]
     Active Substance: PACLITAXEL
     Indication: PANCREATIC CARCINOMA
     Dosage: 28DAYCYCLE IV
     Route: 042
     Dates: start: 20170227, end: 20170411
  2. GEMCITABINE [Suspect]
     Active Substance: GEMCITABINE\GEMCITABINE HYDROCHLORIDE
     Indication: PANCREATIC CARCINOMA
     Dosage: 28DAYCYCLE IV
     Route: 042
     Dates: start: 20170227, end: 20170411

REACTIONS (3)
  - Cellulitis [None]
  - Wound dehiscence [None]
  - Postoperative wound complication [None]

NARRATIVE: CASE EVENT DATE: 20170816
